FAERS Safety Report 9793386 (Version 3)
Quarter: 2014Q1

REPORT INFORMATION
  Report Type: Spontaneous
  Country: CN (occurrence: CN)
  Receive Date: 20140102
  Receipt Date: 20140307
  Transmission Date: 20141002
  Serious: Yes (Other)
  Sender: FDA-Public Use
  Company Number: CN-NAPPMUNDI-GBR-2013-0016778

PATIENT
  Sex: Male

DRUGS (2)
  1. NORSPAN 5 UG/H [Suspect]
     Indication: PAIN
     Dosage: 5 MCG, Q1H
     Route: 062
     Dates: start: 20131218, end: 20131219
  2. AMLODIPINE BESILATE W/VALSARTAN [Concomitant]
     Indication: HYPERTENSION

REACTIONS (9)
  - Pulse pressure abnormal [Recovered/Resolved]
  - Wrong technique in drug usage process [Unknown]
  - Nausea [Recovered/Resolved]
  - Vomiting [Recovered/Resolved]
  - Blood pressure decreased [Recovered/Resolved]
  - Hypertension [Recovered/Resolved]
  - Decreased appetite [Recovered/Resolved]
  - Incorrect drug administration duration [Unknown]
  - Drug ineffective [Unknown]
